FAERS Safety Report 14073248 (Version 1)
Quarter: 2017Q4

REPORT INFORMATION
  Report Type: Report from Study
  Country: CH (occurrence: CH)
  Receive Date: 20171011
  Receipt Date: 20171011
  Transmission Date: 20180321
  Serious: Yes (Other)
  Sender: FDA-Public Use
  Company Number: CH-ROCHE-1930303

PATIENT

DRUGS (3)
  1. INTERFERON ALFA-2A [Suspect]
     Active Substance: INTERFERON ALFA-2A
     Dosage: FOR ANOTHER 5 OR 11 MONTHS
     Route: 058
  2. INTERFERON ALFA-2A [Suspect]
     Active Substance: INTERFERON ALFA-2A
     Indication: CHRONIC HEPATITIS C
     Route: 058
  3. RIBAVIRIN. [Suspect]
     Active Substance: RIBAVIRIN
     Indication: CHRONIC HEPATITIS C
     Dosage: HIGH DOSE: 1,000/1,200 MG OR LOW DOSE: 600 MG DEPENDING ON BODY WEIGHT
     Route: 065

REACTIONS (10)
  - Anaemia [Unknown]
  - Pharyngitis [Unknown]
  - Dizziness [Unknown]
  - Influenza like illness [Unknown]
  - Granulocytopenia [Unknown]
  - Thrombocytopenia [Unknown]
  - Gastrointestinal disorder [Unknown]
  - Alopecia [Unknown]
  - Depression [Unknown]
  - Leukopenia [Unknown]
